FAERS Safety Report 18677470 (Version 1)
Quarter: 2020Q4

REPORT INFORMATION
  Report Type: Report from Study
  Country: US (occurrence: US)
  Receive Date: 20201229
  Receipt Date: 20201229
  Transmission Date: 20210114
  Serious: Yes (Other)
  Sender: FDA-Public Use
  Company Number: US-GLAXOSMITHKLINE-US2020AMR090197

PATIENT
  Sex: Female

DRUGS (4)
  1. NIRAPARIB [Suspect]
     Active Substance: NIRAPARIB
     Dosage: 100 MG, QD
     Dates: start: 20200722
  2. NIRAPARIB [Suspect]
     Active Substance: NIRAPARIB
     Indication: OVARIAN CANCER
     Dosage: 200 MG
     Dates: start: 202002
  3. NIRAPARIB [Suspect]
     Active Substance: NIRAPARIB
     Dosage: 200 MG, QD
     Dates: start: 20200420, end: 20200701
  4. NIRAPARIB [Suspect]
     Active Substance: NIRAPARIB
     Dosage: 100 MG, QD
     Dates: start: 20200722, end: 20201020

REACTIONS (11)
  - Decreased activity [Unknown]
  - Decreased appetite [Recovering/Resolving]
  - Arthralgia [Unknown]
  - Nausea [Recovering/Resolving]
  - Constipation [Recovering/Resolving]
  - Red blood cell count decreased [Recovered/Resolved]
  - Off label use [Unknown]
  - Gastric cancer [Unknown]
  - Platelet count decreased [Unknown]
  - Hypertension [Not Recovered/Not Resolved]
  - Gingival bleeding [Recovering/Resolving]
